FAERS Safety Report 6522070-7 (Version None)
Quarter: 2009Q4

REPORT INFORMATION
  Report Type: 
  Country: None (occurrence: None)
  Receive Date: 20091230
  Receipt Date: 20091210
  Transmission Date: 20100525
  Serious: Yes (Death, Hospitalization)
  Sender: FDA-Public Use
  Company Number: PHHY2009TW54714

PATIENT
  Sex: Male
  Weight: 61 kg

DRUGS (2)
  1. NEORAL [Suspect]
     Indication: LIVER TRANSPLANT
     Dosage: 250 MG DAILY
     Route: 048
     Dates: start: 20080722, end: 20090118
  2. ANTIBIOTICS [Suspect]
     Indication: ABDOMINAL ABSCESS
     Dosage: UNK
     Dates: start: 20090511

REACTIONS (16)
  - ABDOMINAL ABSCESS [None]
  - ACIDOSIS [None]
  - ATELECTASIS [None]
  - BILE DUCT OBSTRUCTION [None]
  - BILE DUCT STENOSIS [None]
  - BILE DUCT STENT INSERTION [None]
  - BLOOD CREATININE INCREASED [None]
  - BLOOD TRIGLYCERIDES INCREASED [None]
  - CHOLANGITIS ACUTE [None]
  - DYSPNOEA [None]
  - FISTULA [None]
  - HAEMOGLOBIN DECREASED [None]
  - PYREXIA [None]
  - RESPIRATORY FAILURE [None]
  - SEPTIC SHOCK [None]
  - SPUTUM RETENTION [None]
